FAERS Safety Report 8926668 (Version 1)
Quarter: 2012Q4

REPORT INFORMATION
  Report Type: 
  Country: BR (occurrence: BR)
  Receive Date: 20121127
  Receipt Date: 20121127
  Transmission Date: 20130627
  Serious: Yes (Hospitalization)
  Sender: FDA-Public Use
  Company Number: BR-PFIZER INC-2012294833

PATIENT
  Age: 79 Year
  Sex: Female

DRUGS (1)
  1. LIPITOR [Suspect]
     Indication: HIGH CHOLESTEROL
     Dosage: 10 mg, 1x/day
     Route: 048
     Dates: start: 20110331

REACTIONS (3)
  - Cardiac disorder [Unknown]
  - Renal disorder [Unknown]
  - Lung disorder [Unknown]
